FAERS Safety Report 15180459 (Version 1)
Quarter: 2018Q3

REPORT INFORMATION
  Report Type: Spontaneous
  Country: FR (occurrence: FR)
  Receive Date: 20180723
  Receipt Date: 20180723
  Transmission Date: 20181010
  Serious: Yes (Death)
  Sender: FDA-Public Use
  Company Number: FR-PFIZER INC-2018292930

PATIENT
  Age: 59 Year
  Sex: Male

DRUGS (3)
  1. FLAGYL [Suspect]
     Active Substance: METRONIDAZOLE\METRONIDAZOLE HYDROCHLORIDE
     Indication: INFECTIOUS COLITIS
     Dosage: UNK
     Route: 048
     Dates: start: 20180319, end: 20180402
  2. TAZOCILLINE [Suspect]
     Active Substance: PIPERACILLIN SODIUM\TAZOBACTAM SODIUM
     Indication: INFECTIOUS COLITIS
     Dosage: UNK
     Route: 041
     Dates: start: 20180403
  3. OFLOCET /00731801/ [Suspect]
     Active Substance: OFLOXACIN
     Indication: INFECTIOUS COLITIS
     Dosage: UNK
     Route: 048
     Dates: start: 20180319, end: 20180402

REACTIONS (2)
  - Thrombotic thrombocytopenic purpura [Fatal]
  - Thrombotic microangiopathy [Fatal]

NARRATIVE: CASE EVENT DATE: 20180412
